FAERS Safety Report 10383678 (Version 4)
Quarter: 2014Q4

REPORT INFORMATION
  Report Type: Spontaneous
  Country: US (occurrence: None)
  Receive Date: 20140811
  Receipt Date: 20141105
  Transmission Date: 20150528
  Serious: Yes (Hospitalization)
  Sender: FDA-Public Use
  Company Number: 2014-US-009576

PATIENT
  Age: 69 Year
  Sex: Female

DRUGS (2)
  1. OXYCODONE HYDROCHLORIDE (OXYCODONE HYDROCHLORIDE) [Suspect]
     Active Substance: OXYCODONE HYDROCHLORIDE
     Indication: PAIN
     Dosage: UNK
     Dates: start: 2014
  2. XYREM [Suspect]
     Active Substance: SODIUM OXYBATE
     Indication: NARCOLEPSY
     Route: 048
     Dates: start: 200406, end: 2004

REACTIONS (5)
  - Sedation [None]
  - Sciatica [None]
  - Knee arthroplasty [None]
  - Drug interaction [None]
  - Procedural pain [None]

NARRATIVE: CASE EVENT DATE: 2014
